FAERS Safety Report 11049147 (Version 3)
Quarter: 2015Q3

REPORT INFORMATION
  Report Type: Spontaneous
  Country: US (occurrence: US)
  Receive Date: 20150420
  Receipt Date: 20150902
  Transmission Date: 20151125
  Serious: Yes (Hospitalization)
  Sender: FDA-Public Use
  Company Number: US-009507513-1504USA017707

PATIENT
  Age: 56 Year
  Sex: Female

DRUGS (2)
  1. DULERA [Suspect]
     Active Substance: FORMOTEROL FUMARATE DIHYDRATE\MOMETASONE FUROATE
     Indication: HYPERCHLORHYDRIA
     Dosage: 200/5MCG,  2 PUFFS TWICE DAILY
     Route: 055
     Dates: start: 201410
  2. OMEPRAZOLE. [Concomitant]
     Active Substance: OMEPRAZOLE
     Route: 048

REACTIONS (7)
  - Product quality issue [Unknown]
  - Arthritis [Unknown]
  - Cough [Recovered/Resolved]
  - Dyspnoea [Recovered/Resolved]
  - Drug ineffective for unapproved indication [Unknown]
  - Underdose [Unknown]
  - Drug administration error [Unknown]

NARRATIVE: CASE EVENT DATE: 201410
